FAERS Safety Report 8916523 (Version 2)
Quarter: 2013Q1

REPORT INFORMATION
  Report Type: Report from Study
  Country: US (occurrence: US)
  Receive Date: 20121120
  Receipt Date: 20130221
  Transmission Date: 20140127
  Serious: Yes (Hospitalization)
  Sender: FDA-Public Use
  Company Number: US-ABBOTT-12P-163-1009670-00

PATIENT
  Age: 16 None
  Sex: Male
  Weight: 47.22 kg

DRUGS (8)
  1. HUMIRA [Suspect]
     Indication: CROHN^S DISEASE
     Route: 058
     Dates: start: 201204, end: 201208
  2. IMMURAN [Concomitant]
     Indication: CROHN^S DISEASE
  3. PERIACTIN [Concomitant]
     Indication: INCREASED APPETITE
  4. RANITIDINE [Concomitant]
     Indication: HYPERCHLORHYDRIA
  5. IMODIUM [Concomitant]
     Indication: DIARRHOEA
  6. VITAMIN D [Concomitant]
     Indication: PRODUCT USED FOR UNKNOWN INDICATION
  7. UNKNOWN PROBIOTIC [Concomitant]
     Indication: PRODUCT USED FOR UNKNOWN INDICATION
  8. MULTIVITAMIN [Concomitant]
     Indication: PRODUCT USED FOR UNKNOWN INDICATION

REACTIONS (8)
  - Anastomotic complication [Recovered/Resolved with Sequelae]
  - Intestinal stenosis [Recovered/Resolved with Sequelae]
  - Drug ineffective [Unknown]
  - Crohn^s disease [Not Recovered/Not Resolved]
  - Gastrointestinal anastomotic leak [Recovered/Resolved]
  - Abdominal infection [Recovered/Resolved]
  - Chest pain [Recovered/Resolved]
  - Intestinal fistula [Recovered/Resolved]
